FAERS Safety Report 25180567 (Version 1)
Quarter: 2025Q2

REPORT INFORMATION
  Report Type: Spontaneous
  Country: JP (occurrence: JP)
  Receive Date: 20250409
  Receipt Date: 20250409
  Transmission Date: 20250716
  Serious: Yes (Other)
  Sender: ELI LILLY AND CO
  Company Number: JP-ELI_LILLY_AND_COMPANY-JP202504005518

PATIENT
  Age: 64 Year
  Sex: Male

DRUGS (3)
  1. GEMZAR [Suspect]
     Active Substance: GEMCITABINE HYDROCHLORIDE
     Indication: Small cell lung cancer
     Route: 041
  2. NECITUMUMAB [Suspect]
     Active Substance: NECITUMUMAB
     Indication: Small cell lung cancer
     Route: 041
  3. CISPLATIN [Suspect]
     Active Substance: CISPLATIN
     Indication: Small cell lung cancer
     Route: 041

REACTIONS (6)
  - Hypokalaemia [Unknown]
  - Febrile neutropenia [Unknown]
  - Off label use [Unknown]
  - Hypomagnesaemia [Unknown]
  - Paronychia [Unknown]
  - Rash [Unknown]
